FAERS Safety Report 18337950 (Version 1)
Quarter: 2020Q4

REPORT INFORMATION
  Report Type: Spontaneous
  Country: US (occurrence: US)
  Receive Date: 20201002
  Receipt Date: 20201002
  Transmission Date: 20210113
  Serious: No
  Sender: FDA-Public Use
  Company Number: US-CADILA HEALTHCARE LIMITED-US-ZYDUS-051001

PATIENT
  Age: 73 Year
  Sex: Female

DRUGS (2)
  1. POTASSIUM CITRATE 10 MILLIEQUIVALENT TABLET [Suspect]
     Active Substance: POTASSIUM CITRATE
     Indication: NEPHROLITHIASIS
     Dosage: 10 MILLIEQUIVALENT, BID
     Route: 048
     Dates: end: 20200504
  2. UNSPECIFIED STATIN MEDICATION [Concomitant]
     Indication: HYPERLIPIDAEMIA
     Dosage: UNK

REACTIONS (5)
  - Blood pressure increased [Not Recovered/Not Resolved]
  - Feeling abnormal [Recovered/Resolved]
  - Product dose omission issue [Recovered/Resolved]
  - Product administration error [Recovered/Resolved]
  - Dizziness [Not Recovered/Not Resolved]

NARRATIVE: CASE EVENT DATE: 20200502
